FAERS Safety Report 8069928-8 (Version None)
Quarter: 2012Q1

REPORT INFORMATION
  Report Type: 
  Country: None (occurrence: None)
  Receive Date: 20120125
  Receipt Date: 20120125
  Transmission Date: 20120608
  Serious: Yes (Other)
  Sender: FDA-Public Use
  Company Number: None

PATIENT
  Age: 34 Year
  Sex: Female
  Weight: 72.574 kg

DRUGS (1)
  1. CYMBALTA [Suspect]
     Indication: ANXIETY
     Dosage: 1 PER DAY
     Route: 048
     Dates: start: 20110201, end: 20111107

REACTIONS (10)
  - ABDOMINAL PAIN UPPER [None]
  - NIGHT SWEATS [None]
  - HYPOACUSIS [None]
  - IRRITABILITY [None]
  - DIZZINESS [None]
  - PARAESTHESIA [None]
  - EMOTIONAL DISORDER [None]
  - ASTHENIA [None]
  - FEELING ABNORMAL [None]
  - WITHDRAWAL SYNDROME [None]
